FAERS Safety Report 5009071-5 (Version None)
Quarter: 2006Q2

REPORT INFORMATION
  Report Type: 
  Country: None (occurrence: None)
  Receive Date: 20060519
  Receipt Date: 20060510
  Transmission Date: 20061013
  Serious: Yes (Hospitalization)
  Sender: FDA-Public Use
  Company Number: 06H-163-0308140-00

PATIENT
  Sex: Female

DRUGS (2)
  1. CLINDAMYCIN [Suspect]
     Indication: RHEUMATOID ARTHRITIS
     Dosage: 2XDAY AT 3 WEEK INTERVALS, INVTRAVENOUS
     Route: 042
     Dates: start: 20040401, end: 20040401
  2. CLINDAMYCIN [Suspect]
     Indication: SCLERODERMA
     Dosage: 2XDAY AT 3 WEEK INTERVALS, INVTRAVENOUS
     Route: 042
     Dates: start: 20040401, end: 20040401

REACTIONS (8)
  - CHEST PAIN [None]
  - CHILLS [None]
  - MYALGIA [None]
  - PAIN IN EXTREMITY [None]
  - PAIN IN JAW [None]
  - SERRATIA SEPSIS [None]
  - SHOULDER PAIN [None]
  - TREMOR [None]
